FAERS Safety Report 5039318-0 (Version None)
Quarter: 2006Q2

REPORT INFORMATION
  Report Type: 
  Country: None (occurrence: None)
  Receive Date: 20060629
  Receipt Date: 20060620
  Transmission Date: 20061013
  Serious: Yes (Other)
  Sender: FDA-Public Use
  Company Number: 2006AP02837

PATIENT
  Age: 74 Year
  Sex: Male

DRUGS (4)
  1. SEROQUEL [Suspect]
     Route: 048
     Dates: start: 20060301, end: 20060413
  2. LODOPIN [Suspect]
     Route: 048
     Dates: start: 20060415, end: 20060416
  3. RISPERDAL [Suspect]
     Route: 048
     Dates: start: 20060316, end: 20060419
  4. MEIACT [Suspect]
     Route: 048
     Dates: start: 20060413, end: 20060418

REACTIONS (3)
  - HAEMOGLOBIN DECREASED [None]
  - PLATELET COUNT DECREASED [None]
  - WHITE BLOOD CELL COUNT DECREASED [None]
